FAERS Safety Report 7042805-7 (Version None)
Quarter: 2010Q4

REPORT INFORMATION
  Report Type: 
  Country: None (occurrence: None)
  Receive Date: 20101013
  Receipt Date: 20090925
  Transmission Date: 20110411
  Serious: No
  Sender: FDA-Public Use
  Company Number: US-ASTRAZENECA-2009SE15726

PATIENT
  Age: 61 Year
  Sex: Female
  Weight: 86.2 kg

DRUGS (4)
  1. SYMBICORT [Suspect]
     Indication: CHRONIC OBSTRUCTIVE PULMONARY DISEASE
     Dosage: 640 MICROGRAMS
     Route: 055
     Dates: start: 20090601
  2. ATENOLOL [Concomitant]
     Route: 065
  3. SPIRIVA [Concomitant]
     Route: 065
  4. DAYPRO [Concomitant]
     Route: 065

REACTIONS (1)
  - POSTMENOPAUSAL HAEMORRHAGE [None]
